FAERS Safety Report 4687063-3 (Version None)
Quarter: 2005Q2

REPORT INFORMATION
  Report Type: 
  Country: None (occurrence: None)
  Receive Date: 20050608
  Receipt Date: 20050519
  Transmission Date: 20051028
  Serious: Yes (Hospitalization, Other)
  Sender: FDA-Public Use
  Company Number: 2005077695

PATIENT
  Sex: Female
  Weight: 123 kg

DRUGS (9)
  1. NEURONTIN [Suspect]
     Indication: BACK PAIN
     Dosage: 100 MG (100 MG, 1 IN 1 D)
     Dates: start: 20050506
  2. BEXTRA [Suspect]
     Indication: OSTEOARTHRITIS
  3. MOTRIN [Suspect]
     Indication: OSTEOARTHRITIS
  4. FENTANYL [Suspect]
     Indication: BACK PAIN
     Dosage: BACK PAIN
     Route: 062
  5. VIOXX [Suspect]
     Indication: OSTEOARTHRITIS
  6. ADVIL [Suspect]
     Indication: OSTEOARTHRITIS
  7. ALEVE [Concomitant]
  8. LEVOXYL [Concomitant]
  9. ALL OTHER THERAPETUIC RPDOUCTS (ALL OTHER THERAPEUTIC PRODUCTS) [Concomitant]

REACTIONS (12)
  - BODY HEIGHT DECREASED [None]
  - CONSTIPATION [None]
  - DIZZINESS [None]
  - DRUG INEFFECTIVE [None]
  - FEELING ABNORMAL [None]
  - GASTRITIS [None]
  - IMPAIRED DRIVING ABILITY [None]
  - MUSCLE SPASMS [None]
  - NAUSEA [None]
  - PARALYSIS [None]
  - PRURITUS [None]
  - SOMNOLENCE [None]
